FAERS Safety Report 23208628 (Version 5)
Quarter: 2025Q4

REPORT INFORMATION
  Report Type: Report from Study
  Country: EU (occurrence: EU)
  Receive Date: 20231121
  Receipt Date: 20251127
  Transmission Date: 20260118
  Serious: Yes (Hospitalization)
  Sender: TAKEDA
  Company Number: EU-TAKEDA-2023TUS043214

PATIENT
  Age: 83 Year
  Sex: Female

DRUGS (13)
  1. TEDUGLUTIDE [Suspect]
     Active Substance: TEDUGLUTIDE
     Indication: Short-bowel syndrome
     Dosage: 2.4 MILLIGRAM, QD
     Dates: start: 20180529, end: 20231019
  2. TEDUGLUTIDE [Suspect]
     Active Substance: TEDUGLUTIDE
     Dosage: 2 MILLIGRAM, QD
     Dates: start: 20231020
  3. TEDUGLUTIDE [Suspect]
     Active Substance: TEDUGLUTIDE
  4. TEDUGLUTIDE [Suspect]
     Active Substance: TEDUGLUTIDE
  5. RIFAXIMIN [Concomitant]
     Active Substance: RIFAXIMIN
     Indication: Supplementation therapy
     Dosage: UNK
  6. Enterolactis plus [Concomitant]
     Indication: Supplementation therapy
     Dosage: UNK UNK, QD
     Dates: start: 2023, end: 202304
  7. Dicoflor complex [Concomitant]
     Indication: Nutritional supplementation
     Dosage: UNK UNK, QD
     Dates: start: 2023
  8. PENTASA [Concomitant]
     Active Substance: MESALAMINE
     Indication: Short-bowel syndrome
     Dosage: 500 MILLIGRAM, TID
     Dates: start: 2013
  9. MAGNESIUM ASPARTATE\POTASSIUM ASPARTATE [Concomitant]
     Active Substance: MAGNESIUM ASPARTATE\POTASSIUM ASPARTATE
     Indication: Short-bowel syndrome
     Dosage: 1 INTERNATIONAL UNIT, QD
     Dates: start: 202105
  10. CHOLECALCIFEROL [Concomitant]
     Active Substance: CHOLECALCIFEROL
     Indication: Osteoporosis
     Dosage: 100000 INTERNATIONAL UNIT, Q4MONTHS
     Dates: start: 202105
  11. MAGNESIUM [Concomitant]
     Active Substance: MAGNESIUM
     Indication: Mineral supplementation
     Dosage: UNK UNK, QD
     Dates: start: 20220601, end: 2023
  12. VITAMIN B12 [Concomitant]
     Active Substance: CYANOCOBALAMIN
     Indication: Vitamin supplementation
     Dosage: UNK UNK, QD
     Dates: start: 2023
  13. Motilex [Concomitant]
     Indication: Nausea
     Dosage: UNK UNK, QD
     Dates: start: 20230306, end: 202304

REACTIONS (3)
  - Malnutrition [Recovered/Resolved]
  - Gastrooesophageal reflux disease [Recovered/Resolved]
  - Haemorrhoids [Not Recovered/Not Resolved]

NARRATIVE: CASE EVENT DATE: 20230101
